FAERS Safety Report 23781548 (Version 2)
Quarter: 2024Q2

REPORT INFORMATION
  Report Type: Spontaneous
  Country: US (occurrence: US)
  Receive Date: 20240425
  Receipt Date: 20240503
  Transmission Date: 20240715
  Serious: No
  Sender: FDA-Public Use
  Company Number: US-TEVA-VS-3182018

PATIENT
  Age: 43 Year
  Sex: Female

DRUGS (1)
  1. PENICILLIN V POTASSIUM [Suspect]
     Active Substance: PENICILLIN V POTASSIUM
     Indication: Product used for unknown indication
     Route: 065
     Dates: start: 20240327

REACTIONS (4)
  - Abdominal pain upper [Unknown]
  - Product physical issue [Unknown]
  - Product use complaint [Unknown]
  - Product taste abnormal [Unknown]
